FAERS Safety Report 6924990-8 (Version None)
Quarter: 2010Q3

REPORT INFORMATION
  Report Type: 
  Country: None (occurrence: None)
  Receive Date: 20100816
  Receipt Date: 20100803
  Transmission Date: 20110219
  Serious: Yes (Other)
  Sender: FDA-Public Use
  Company Number: US-KINGPHARMUSA00001-K201000996

PATIENT
  Sex: Male
  Weight: 79.365 kg

DRUGS (2)
  1. SKELAXIN [Suspect]
     Indication: MUSCLE RELAXANT THERAPY
     Dosage: 800 MG, TWO DOSES
     Route: 048
     Dates: start: 20100715, end: 20100717
  2. SKELAXIN [Suspect]
     Indication: SCIATICA

REACTIONS (5)
  - MALAISE [None]
  - SCOTOMA [None]
  - VISION BLURRED [None]
  - VISUAL FIELD DEFECT [None]
  - VISUAL IMPAIRMENT [None]
